FAERS Safety Report 4709020-0 (Version None)
Quarter: 2005Q3

REPORT INFORMATION
  Report Type: 
  Country: None (occurrence: None)
  Receive Date: 20050707
  Receipt Date: 20050627
  Transmission Date: 20060218
  Serious: Yes (Other)
  Sender: FDA-Public Use
  Company Number: HQWYE210317JUL04

PATIENT
  Age: 59 Year
  Sex: Female
  Weight: 81.72 kg

DRUGS (4)
  1. PREMARIN [Suspect]
     Indication: HOT FLUSH
     Dosage: 0.625MG, ORAL
     Route: 048
     Dates: start: 19920201, end: 19940101
  2. OGEN [Suspect]
     Indication: HOT FLUSH
     Dosage: 0.625MG
     Dates: start: 19940101, end: 20000601
  3. PROVERA [Suspect]
     Indication: CARDIAC DISORDER
     Dosage: 2.5 MG, ORAL
     Route: 048
     Dates: start: 19940101, end: 20000101
  4. PROVERA [Suspect]
     Indication: PROPHYLAXIS
     Dosage: 2.5 MG, ORAL
     Route: 048
     Dates: start: 19940101, end: 20000101

REACTIONS (3)
  - BREAST CANCER METASTATIC [None]
  - METASTASES TO BONE [None]
  - TUMOUR NECROSIS [None]
